FAERS Safety Report 10713780 (Version 2)
Quarter: 2015Q1

REPORT INFORMATION
  Report Type: Spontaneous
  Country: US (occurrence: US)
  Receive Date: 20150115
  Receipt Date: 20150205
  Transmission Date: 20150721
  Serious: Yes (Death, Other)
  Sender: FDA-Public Use
  Company Number: US-PFIZER INC-2015010677

PATIENT
  Age: 74 Year
  Sex: Male

DRUGS (9)
  1. REVATIO [Suspect]
     Active Substance: SILDENAFIL CITRATE
     Indication: CARDIAC DISORDER
     Dosage: 2 MG, 3X/DAY
     Dates: end: 20141005
  2. CLONAZEPAM. [Concomitant]
     Active Substance: CLONAZEPAM
     Indication: NERVOUSNESS
     Dosage: 1, DAILY
  3. SIMVASTATIN. [Concomitant]
     Active Substance: SIMVASTATIN
     Indication: BLOOD CHOLESTEROL
     Dosage: 1, DAILY IN THE PM
  4. PANTOPRAZOLE [Concomitant]
     Active Substance: PANTOPRAZOLE SODIUM
     Indication: GASTRIC ULCER
     Dosage: ONE IN THE MORNING
  5. HALOPERIDOL. [Concomitant]
     Active Substance: HALOPERIDOL
     Indication: BIPOLAR DISORDER
     Dosage: 1, DAILY IN THE PM
  6. MAGAXIM [Concomitant]
     Indication: STEROID THERAPY
     Dosage: UNK, 1X/DAY
  7. AMIODARONE [Concomitant]
     Active Substance: AMIODARONE
     Dosage: UNK, 1X/DAY
  8. FUROSEMIDE. [Concomitant]
     Active Substance: FUROSEMIDE
     Indication: FLUID RETENTION
     Dosage: UNK, 2X/DAY
  9. METOPROLOL [Concomitant]
     Active Substance: METOPROLOL
     Indication: BLOOD PRESSURE
     Dosage: ONE IN THE PM, 1X/DAY

REACTIONS (7)
  - Cardiac failure congestive [Fatal]
  - Chronic obstructive pulmonary disease [Fatal]
  - Cardiomyopathy [Fatal]
  - Renal disorder [Fatal]
  - Hypersomnia [Unknown]
  - Coronary artery disease [Fatal]
  - Hypertension [Fatal]
